FAERS Safety Report 8515673 (Version 2)
Quarter: 2016Q4

REPORT INFORMATION
  Report Type: Spontaneous
  Country: US (occurrence: US)
  Receive Date: 20120417
  Receipt Date: 20161214
  Transmission Date: 20170207
  Serious: Yes (Hospitalization, Other)
  Sender: FDA-Public Use
  Company Number: US-ROCHE-793960

PATIENT
  Age: 30 Year
  Sex: Female
  Weight: 66.28 kg

DRUGS (1)
  1. ACCUTANE [Suspect]
     Active Substance: ISOTRETINOIN
     Indication: ACNE
     Route: 065

REACTIONS (8)
  - Headache [Unknown]
  - Intestinal ischaemia [Unknown]
  - Colitis ischaemic [Unknown]
  - Colitis ulcerative [Unknown]
  - Depression [Unknown]
  - Suicide attempt [Unknown]
  - Inflammatory bowel disease [Unknown]
  - Upper gastrointestinal haemorrhage [Unknown]

NARRATIVE: CASE EVENT DATE: 20110406
